FAERS Safety Report 10438770 (Version 1)
Quarter: 2014Q3

REPORT INFORMATION
  Report Type: Spontaneous
  Country: AU (occurrence: AU)
  Receive Date: 20140908
  Receipt Date: 20140908
  Transmission Date: 20150326
  Serious: Yes (Other)
  Sender: FDA-Public Use
  Company Number: PHHY2014AU109533

PATIENT
  Age: 62 Year
  Sex: Female

DRUGS (1)
  1. CEFEPIME [Suspect]
     Active Substance: CEFEPIME\CEFEPIME HYDROCHLORIDE
     Indication: OSTEOMYELITIS CHRONIC
     Route: 042

REACTIONS (3)
  - Renal failure acute [Recovering/Resolving]
  - Tubulointerstitial nephritis [Recovering/Resolving]
  - Blood creatinine increased [Recovering/Resolving]
